FAERS Safety Report 18895073 (Version 1)
Quarter: 2021Q1

REPORT INFORMATION
  Report Type: Spontaneous
  Country: FR (occurrence: FR)
  Receive Date: 20210216
  Receipt Date: 20210216
  Transmission Date: 20210420
  Serious: Yes (Hospitalization)
  Sender: FDA-Public Use
  Company Number: FR-UCBSA-2021006053

PATIENT
  Age: 30 Year
  Sex: Female

DRUGS (5)
  1. DEPAKINE [VALPROATE SODIUM] [Suspect]
     Active Substance: VALPROATE SODIUM
     Indication: EPILEPSY
     Dosage: NOT ADMINISTERED
     Dates: start: 20210113, end: 20210114
  2. POTASSIUM BROMIDE [Suspect]
     Active Substance: POTASSIUM BROMIDE
     Indication: PRODUCT USED FOR UNKNOWN INDICATION
     Dosage: NOT ADMINISTERED
     Dates: start: 20210113, end: 20210114
  3. VIMPAT [Suspect]
     Active Substance: LACOSAMIDE
     Indication: EPILEPSY
     Dosage: NOT ADMINISTERED
     Route: 048
     Dates: start: 20210113, end: 20210114
  4. MIDAZOLAM. [Concomitant]
     Active Substance: MIDAZOLAM
     Indication: PRODUCT USED FOR UNKNOWN INDICATION
  5. KEPPRA [Suspect]
     Active Substance: LEVETIRACETAM
     Indication: EPILEPSY
     Dosage: NOT ADMINISTERED
     Route: 048
     Dates: start: 20210113, end: 20210114

REACTIONS (2)
  - Status epilepticus [Recovered/Resolved]
  - Wrong technique in product usage process [Unknown]

NARRATIVE: CASE EVENT DATE: 20210113
